FAERS Safety Report 16405424 (Version 3)
Quarter: 2019Q3

REPORT INFORMATION
  Report Type: Spontaneous
  Country: BR (occurrence: BR)
  Receive Date: 20190607
  Receipt Date: 20190905
  Transmission Date: 20191004
  Serious: Yes (Hospitalization, Other)
  Sender: FDA-Public Use
  Company Number: BR-ELI_LILLY_AND_COMPANY-BR201906001235

PATIENT
  Sex: Male
  Weight: 94 kg

DRUGS (6)
  1. ZINPASS [Concomitant]
     Indication: BLOOD CHOLESTEROL
     Dosage: UNK, DAILY
     Route: 065
     Dates: start: 201901
  2. AAS [Concomitant]
     Active Substance: ASPIRIN
     Indication: PRODUCT USED FOR UNKNOWN INDICATION
     Dosage: UNK, DAILY
     Route: 065
     Dates: start: 201901
  3. SIMVASTATIN. [Concomitant]
     Active Substance: SIMVASTATIN
     Indication: PRODUCT USED FOR UNKNOWN INDICATION
     Dosage: 10 MG, UNKNOWN
     Route: 048
     Dates: start: 2019
  4. SIMVASTATIN. [Concomitant]
     Active Substance: SIMVASTATIN
     Dosage: 20 MG, UNKNOWN
     Route: 048
     Dates: start: 2019
  5. LOSARTAN. [Concomitant]
     Active Substance: LOSARTAN
     Indication: HYPERTENSION
     Dosage: UNK, DAILY
     Route: 065
     Dates: start: 201901
  6. EFFIENT [Suspect]
     Active Substance: PRASUGREL HYDROCHLORIDE
     Indication: ANTIPLATELET THERAPY
     Dosage: 10 MG, DAILY
     Route: 048
     Dates: start: 201902

REACTIONS (3)
  - Pulmonary haemorrhage [Recovering/Resolving]
  - Infarction [Recovering/Resolving]
  - Vascular occlusion [Recovering/Resolving]

NARRATIVE: CASE EVENT DATE: 2019
